FAERS Safety Report 23278257 (Version 1)
Quarter: 2023Q4

REPORT INFORMATION
  Report Type: Spontaneous
  Country: US (occurrence: US)
  Receive Date: 20231208
  Receipt Date: 20231208
  Transmission Date: 20240109
  Serious: No
  Sender: FDA-Public Use
  Company Number: US-ABBVIE-5523596

PATIENT
  Age: 29 Year
  Sex: Female

DRUGS (1)
  1. VIBERZI [Suspect]
     Active Substance: ELUXADOLINE
     Indication: Irritable bowel syndrome
     Route: 048
     Dates: end: 20231129

REACTIONS (6)
  - Gallbladder disorder [Unknown]
  - Vomiting [Unknown]
  - Blood bilirubin increased [Unknown]
  - Nausea [Unknown]
  - Abdominal pain [Unknown]
  - Constipation [Unknown]

NARRATIVE: CASE EVENT DATE: 20231129
